FAERS Safety Report 6093032-1 (Version None)
Quarter: 2009Q1

REPORT INFORMATION
  Report Type: 
  Country: None (occurrence: None)
  Receive Date: 20090224
  Receipt Date: 20090209
  Transmission Date: 20090719
  Serious: Yes (Hospitalization)
  Sender: FDA-Public Use
  Company Number: ADR0392009

PATIENT
  Age: 80 Year
  Sex: Female

DRUGS (6)
  1. PRAVASTATIN [Suspect]
     Indication: HYPERCHOLESTEROLAEMIA
  2. ASPIRIN [Concomitant]
  3. LEVOTHYROXIME [Concomitant]
  4. ATENOLOL [Concomitant]
  5. AMITRIPTYLINE HCL [Concomitant]
  6. ARTHOTEC (DICLOFENAC/MISOPROSTOL) [Concomitant]

REACTIONS (2)
  - COLITIS [None]
  - DRUG INTERACTION [None]
